FAERS Safety Report 8858583 (Version 2)
Quarter: 2013Q1

REPORT INFORMATION
  Report Type: Spontaneous
  Country: US (occurrence: US)
  Receive Date: 20121024
  Receipt Date: 20130115
  Transmission Date: 20140127
  Serious: Yes (Hospitalization, Other)
  Sender: FDA-Public Use
  Company Number: US-009507513-1204USA02202

PATIENT
  Sex: 0

DRUGS (5)
  1. FOSAMAX [Suspect]
     Indication: OSTEOPENIA
     Dosage: 10 MG, UNK
     Route: 048
     Dates: start: 1995, end: 201004
  2. FOSAMAX [Suspect]
     Indication: OSTEOPOROSIS
     Dosage: 70 MG, UNK
     Route: 048
     Dates: end: 201004
  3. CALCIUM (UNSPECIFIED) [Concomitant]
     Dosage: 1200 MG, UNK
     Dates: start: 1992
  4. SYNTHROID [Concomitant]
     Dosage: UNK
     Dates: start: 1993
  5. ALENDRONATE SODIUM [Suspect]
     Dosage: 70 MG, UNK
     Route: 048

REACTIONS (34)
  - Femur fracture [Recovered/Resolved]
  - Intramedullary rod insertion [Unknown]
  - Haematocrit decreased [Unknown]
  - Uterine dilation and curettage [Unknown]
  - Uterine tumour excision [Unknown]
  - Endodontic procedure [Unknown]
  - Hypoaesthesia [Unknown]
  - Iatrogenic injury [Unknown]
  - Fall [Unknown]
  - Tricuspid valve incompetence [Unknown]
  - Bronchiectasis [Unknown]
  - Productive cough [Unknown]
  - Spinal osteoarthritis [Unknown]
  - Exostosis [Unknown]
  - Intervertebral disc protrusion [Unknown]
  - Palpitations [Unknown]
  - Blood calcium increased [Unknown]
  - Vitamin D increased [Unknown]
  - Thyroid neoplasm [Unknown]
  - Thyroid cyst [Unknown]
  - Hypercholesterolaemia [Unknown]
  - Pulmonary mass [Unknown]
  - Bronchitis chronic [Not Recovered/Not Resolved]
  - Eczema [Unknown]
  - Upper-airway cough syndrome [Unknown]
  - Spinal column stenosis [Unknown]
  - Cardiac murmur [Unknown]
  - Glaucoma [Unknown]
  - Gastrooesophageal reflux disease [Unknown]
  - Pain in extremity [Not Recovered/Not Resolved]
  - Limb asymmetry [Unknown]
  - Arthralgia [Unknown]
  - Neuropathy peripheral [Unknown]
  - Bone disorder [Unknown]
